FAERS Safety Report 10354345 (Version 4)
Quarter: 2014Q4

REPORT INFORMATION
  Report Type: Spontaneous
  Country: JP (occurrence: JP)
  Receive Date: 20140731
  Receipt Date: 20141224
  Transmission Date: 20150528
  Serious: Yes (Death)
  Sender: FDA-Public Use
  Company Number: JP-ASTELLAS-2014JP015991AA

PATIENT
  Age: 42 Year
  Sex: Female
  Weight: 46 kg

DRUGS (6)
  1. PROGRAF [Suspect]
     Active Substance: TACROLIMUS\TACROLIMUS ANHYDROUS
     Indication: TRANSPLANT REJECTION
     Route: 048
     Dates: start: 20120403, end: 20120518
  2. PROGRAF [Suspect]
     Active Substance: TACROLIMUS\TACROLIMUS ANHYDROUS
     Indication: TRANSPLANT REJECTION
     Dosage: 0.4?G/KG/HR
     Route: 041
     Dates: start: 20120319, end: 20120403
  3. SOLU-MEDROL [Suspect]
     Active Substance: METHYLPREDNISOLONE SODIUM SUCCINATE
     Dosage: UNK UNK, UNKNOWN FREQ.
     Route: 065
  4. SOLU-MEDROL [Suspect]
     Active Substance: METHYLPREDNISOLONE SODIUM SUCCINATE
     Route: 065
     Dates: start: 20120430, end: 20120508
  5. SOLU-MEDROL [Suspect]
     Active Substance: METHYLPREDNISOLONE SODIUM SUCCINATE
     Indication: TRANSPLANT REJECTION
     Route: 065
     Dates: start: 20120319
  6. NEORAL [Concomitant]
     Active Substance: CYCLOSPORINE
     Indication: TRANSPLANT REJECTION
     Route: 048
     Dates: start: 20120518, end: 201206

REACTIONS (3)
  - Cardiac amyloidosis [Fatal]
  - Ventricular tachycardia [Fatal]
  - Restrictive cardiomyopathy [Fatal]

NARRATIVE: CASE EVENT DATE: 201205
